FAERS Safety Report 4900043-5 (Version None)
Quarter: 2006Q1

REPORT INFORMATION
  Report Type: 
  Country: None (occurrence: None)
  Receive Date: 20060203
  Receipt Date: 20060130
  Transmission Date: 20060701
  Serious: Yes (Life-Threatening)
  Sender: FDA-Public Use
  Company Number: PHEH2006US01504

PATIENT
  Age: 74 Year
  Sex: Female

DRUGS (1)
  1. RITALIN [Suspect]
     Indication: CENTRAL NERVOUS SYSTEM STIMULATION
     Dosage: 20 MG, Q6H
     Dates: start: 20060101

REACTIONS (1)
  - CARDIAC ARREST [None]
